FAERS Safety Report 6467055-4 (Version None)
Quarter: 2009Q4

REPORT INFORMATION
  Report Type: 
  Country: None (occurrence: None)
  Receive Date: 20091118
  Receipt Date: 20091118
  Transmission Date: 20100525
  Serious: Yes (Hospitalization)
  Sender: FDA-Public Use
  Company Number: 2009BI025499

PATIENT
  Age: 33 Year
  Sex: Female

DRUGS (6)
  1. TYSABRI [Suspect]
     Indication: MULTIPLE SCLEROSIS
     Dosage: 300 MG; QM; IV
     Route: 042
     Dates: start: 20080602
  2. CELEXA [Concomitant]
  3. REBIF [Concomitant]
  4. COPAXONE [Concomitant]
  5. NOVANTRONE [Concomitant]
  6. CHEMOTHERAPY [Concomitant]

REACTIONS (3)
  - GASTROENTERITIS CRYPTOSPORIDIAL [None]
  - SUICIDE ATTEMPT [None]
  - WEIGHT DECREASED [None]
